FAERS Safety Report 9124418 (Version 1)
Quarter: 2013Q1

REPORT INFORMATION
  Report Type: Spontaneous
  Country: DE (occurrence: DE)
  Receive Date: 20130227
  Receipt Date: 20130227
  Transmission Date: 20140127
  Serious: Yes (Other)
  Sender: FDA-Public Use
  Company Number: DE-BAYER-2013-008524

PATIENT
  Age: 63 Year
  Sex: Male
  Weight: 86 kg

DRUGS (22)
  1. XARELTO [Suspect]
     Indication: CARDIOMYOPATHY
     Dosage: 15 MG, QD
     Route: 048
     Dates: start: 20121206, end: 20121218
  2. ACETYLSALICYLIC ACID({=100 MG) [Suspect]
     Dosage: 100 MG, QD
  3. HYDROXYUREA [Concomitant]
     Indication: ADENOMA BENIGN
     Dosage: 500 MG, QD
     Dates: start: 20081211, end: 20121218
  4. TORASEMID [Concomitant]
     Dosage: UNK UNK, BID
  5. RAMIPRIL [Concomitant]
     Dosage: 25 MG, QD
  6. BISOLICH [Concomitant]
     Dosage: 5 MG, QD
  7. XIPAMID [Concomitant]
     Dosage: 10 MG, QD
  8. SIMVASTATIN [Concomitant]
     Dosage: 20 MG, QD
  9. ISDN [Concomitant]
     Indication: PRODUCT USED FOR UNKNOWN INDICATION
  10. MOLSIDOMIN [Concomitant]
     Indication: PRODUCT USED FOR UNKNOWN INDICATION
  11. LYRICA [Concomitant]
     Dosage: 150 MG, BID
  12. JANUVIA [Concomitant]
     Indication: PRODUCT USED FOR UNKNOWN INDICATION
     Dosage: 100 MG, QD
  13. SYREA [Concomitant]
     Dosage: UNK
  14. CLOPIDOGREL [Concomitant]
     Dosage: 75 MG, QD
  15. PANTOPRAZOLE [Concomitant]
     Dosage: 40 MG, QD
  16. DULCOLAX [BISACODYL] [Concomitant]
     Dosage: UNK
  17. VALORON N [Concomitant]
     Dosage: UNK
  18. MARCUMAR [Concomitant]
     Dosage: UNK
     Dates: start: 201204, end: 201204
  19. BERODUAL [Concomitant]
     Dosage: UNK
  20. VIANI [Concomitant]
  21. NITROLINGUAL [Concomitant]
  22. L-THYROX [Concomitant]
     Dosage: 25 MG, QD

REACTIONS (1)
  - Thrombocytopenia [Recovered/Resolved]
